FAERS Safety Report 18756366 (Version 1)
Quarter: 2021Q1

REPORT INFORMATION
  Report Type: Spontaneous
  Country: US (occurrence: US)
  Receive Date: 20210115
  Receipt Date: 20210115
  Transmission Date: 20210419
  Serious: No
  Sender: FDA-Public Use
  Company Number: None

PATIENT
  Age: 12 Year
  Sex: Female

DRUGS (1)
  1. TOBRAMYCIN INH SOLN 4ML AMPS 300MG/4ML TEVA PHARMACEUTICALS USA [Suspect]
     Active Substance: TOBRAMYCIN
     Indication: PNEUMONITIS
     Route: 055
     Dates: start: 202010, end: 202012

REACTIONS (6)
  - Abnormal faeces [None]
  - Ocular hyperaemia [None]
  - Eyelid function disorder [None]
  - Aphthous ulcer [None]
  - Lacrimation increased [None]
  - Faeces discoloured [None]

NARRATIVE: CASE EVENT DATE: 20201022
